FAERS Safety Report 9013973 (Version 1)
Quarter: 2013Q1

REPORT INFORMATION
  Report Type: Spontaneous
  Country: JP (occurrence: US)
  Receive Date: 20130115
  Receipt Date: 20130115
  Transmission Date: 20140127
  Serious: Yes (Hospitalization)
  Sender: FDA-Public Use
  Company Number: US-PFIZER INC-2013014589

PATIENT
  Age: 62 Year
  Sex: Male

DRUGS (8)
  1. HALOPERIDOL [Suspect]
     Indication: SCHIZOPHRENIA
     Dosage: 0.5 MG, 3X/DAY
  2. HALOPERIDOL [Suspect]
     Dosage: 2 MG, HOUR BEFORE SLEEP
  3. FAMOTIDINE [Concomitant]
     Indication: DYSPEPSIA
  4. ASPIRIN [Concomitant]
  5. NITROGLYCERIN [Concomitant]
     Indication: CHEST PAIN
  6. BENZTROPEINE [Concomitant]
  7. CLORAZEPATE [Concomitant]
     Dosage: UNK
  8. CLORAZEPATE [Concomitant]
     Dosage: UNK

REACTIONS (1)
  - Rhabdomyolysis [Recovered/Resolved]
